FAERS Safety Report 7869175-6 (Version None)
Quarter: 2011Q4

REPORT INFORMATION
  Report Type: 
  Country: None (occurrence: None)
  Receive Date: 20111028
  Receipt Date: 20101228
  Transmission Date: 20120403
  Serious: No
  Sender: FDA-Public Use
  Company Number: US-AMGEN-USASP2010011941

PATIENT
  Age: 74 Year
  Sex: Female
  Weight: 130 kg

DRUGS (7)
  1. PROTONIX [Concomitant]
     Dosage: 40 MG, UNK
  2. FOLIC ACID [Concomitant]
     Dosage: 1 MG, UNK
  3. LEVOTHYROXINE SODIUM [Concomitant]
     Dosage: 88 UNK, UNK
  4. PREDNISONE [Concomitant]
     Dosage: 1 MG, UNK
  5. GABAPENTIN [Concomitant]
     Dosage: 300 MG, UNK
  6. ENBREL [Suspect]
     Indication: PRODUCT USED FOR UNKNOWN INDICATION
     Dosage: 50 MG, QWK
     Route: 058
  7. METHOTREXATE [Concomitant]
     Dosage: 2.5 MG, UNK

REACTIONS (1)
  - OVARIAN CYST [None]
